FAERS Safety Report 16398473 (Version 1)
Quarter: 2019Q2

REPORT INFORMATION
  Report Type: Spontaneous
  Country: US (occurrence: US)
  Receive Date: 20190606
  Receipt Date: 20190606
  Transmission Date: 20190711
  Serious: Yes (Hospitalization)
  Sender: FDA-Public Use
  Company Number: US-ASTRAZENECA-2019SE81101

PATIENT
  Age: 65 Year
  Sex: Female

DRUGS (1)
  1. LYNPARZA [Suspect]
     Active Substance: OLAPARIB
     Indication: OVARIAN CANCER
     Route: 048
     Dates: start: 2019

REACTIONS (5)
  - Dehydration [Unknown]
  - Blood creatine abnormal [Unknown]
  - Nausea [Unknown]
  - Colitis microscopic [Unknown]
  - Vomiting [Unknown]

NARRATIVE: CASE EVENT DATE: 201905
